FAERS Safety Report 11391692 (Version 2)
Quarter: 2015Q3

REPORT INFORMATION
  Report Type: Spontaneous
  Country: DE (occurrence: DE)
  Receive Date: 20150818
  Receipt Date: 20150901
  Transmission Date: 20151125
  Serious: No
  Sender: FDA-Public Use
  Company Number: DE-ELI_LILLY_AND_COMPANY-DE201508002873

PATIENT
  Sex: Male

DRUGS (5)
  1. XARELTO [Concomitant]
     Active Substance: RIVAROXABAN
     Dosage: 20 MG, QD
     Route: 065
  2. CANDECOR [Concomitant]
     Dosage: 8 MG, QD
     Route: 065
  3. CIALIS [Suspect]
     Active Substance: TADALAFIL
     Indication: URINARY TRACT DISORDER
     Dosage: 5 MG, QD
     Route: 048
     Dates: start: 201506
  4. BISOPROLOL [Concomitant]
     Active Substance: BISOPROLOL
     Dosage: 2.5 MG, QD
     Route: 065
  5. PANTOPRAZOLE SODIUM. [Concomitant]
     Active Substance: PANTOPRAZOLE SODIUM
     Dosage: UNK, QD
     Route: 065

REACTIONS (11)
  - Vomiting [Unknown]
  - Asthenia [Unknown]
  - Eyelid disorder [Unknown]
  - Influenza [Unknown]
  - Feeling abnormal [Unknown]
  - Head discomfort [Unknown]
  - Headache [Unknown]
  - Visual acuity reduced [Unknown]
  - Skin discolouration [Unknown]
  - Eye irritation [Unknown]
  - Restlessness [Unknown]
